FAERS Safety Report 10014955 (Version 2)
Quarter: 2014Q2

REPORT INFORMATION
  Report Type: Spontaneous
  Country: US (occurrence: US)
  Receive Date: 20140317
  Receipt Date: 20140414
  Transmission Date: 20141212
  Serious: Yes (Other)
  Sender: FDA-Public Use
  Company Number: US-PFIZER INC-2014073808

PATIENT
  Age: 53 Year
  Sex: Female
  Weight: 45.35 kg

DRUGS (4)
  1. CHANTIX [Suspect]
     Indication: SMOKING CESSATION THERAPY
     Dosage: 0.5 MG, UNK
     Dates: start: 2012, end: 2012
  2. CHANTIX [Suspect]
     Dosage: 1 MG, 2X/DAY
     Dates: start: 2012, end: 2012
  3. RECLAST [Concomitant]
     Indication: BONE DENSITY DECREASED
     Dosage: UNK
  4. ESTROGEN [Concomitant]
     Dosage: UNK

REACTIONS (1)
  - Hepatitis C [Unknown]
